FAERS Safety Report 9639827 (Version 3)
Quarter: 2015Q1

REPORT INFORMATION
  Report Type: Spontaneous
  Country: US (occurrence: US)
  Receive Date: 20131023
  Receipt Date: 20150324
  Transmission Date: 20150721
  Serious: Yes (Hospitalization, Other)
  Sender: FDA-Public Use
  Company Number: US-AMGEN-USASP2013074127

PATIENT
  Age: 65 Year
  Sex: Female

DRUGS (1)
  1. ENBREL [Suspect]
     Active Substance: ETANERCEPT
     Indication: RHEUMATOID ARTHRITIS
     Dosage: 50 MG, QWK
     Route: 065
     Dates: start: 20110101, end: 201409

REACTIONS (17)
  - Diaphragmatic injury [Recovered/Resolved]
  - Abdominal discomfort [Recovered/Resolved]
  - Neck pain [Not Recovered/Not Resolved]
  - Hiatus hernia [Recovered/Resolved]
  - Dyspepsia [Recovered/Resolved]
  - Impaired healing [Unknown]
  - Musculoskeletal pain [Not Recovered/Not Resolved]
  - Condition aggravated [Unknown]
  - Gastrooesophageal reflux disease [Recovered/Resolved]
  - Surgery [Unknown]
  - Hand deformity [Not Recovered/Not Resolved]
  - Mobility decreased [Not Recovered/Not Resolved]
  - Musculoskeletal disorder [Not Recovered/Not Resolved]
  - Pain of skin [Not Recovered/Not Resolved]
  - Limb injury [Not Recovered/Not Resolved]
  - Arthralgia [Not Recovered/Not Resolved]
  - Finger deformity [Unknown]

NARRATIVE: CASE EVENT DATE: 201309
